FAERS Safety Report 11934346 (Version 1)
Quarter: 2016Q1

REPORT INFORMATION
  Report Type: Spontaneous
  Country: US (occurrence: None)
  Receive Date: 20160120
  Receipt Date: 20160120
  Transmission Date: 20160526
  Serious: No
  Sender: FDA-Public Use
  Company Number: None

PATIENT
  Age: 55 Year
  Sex: Female

DRUGS (1)
  1. HUMIRA [Suspect]
     Active Substance: ADALIMUMAB
     Indication: CROHN^S DISEASE
     Dosage: 40MG?Q2W?SQ
     Dates: start: 201506

REACTIONS (5)
  - Vomiting [None]
  - Oropharyngeal pain [None]
  - Drug ineffective [None]
  - Abdominal pain [None]
  - Nausea [None]

NARRATIVE: CASE EVENT DATE: 201601
